FAERS Safety Report 9553264 (Version 1)
Quarter: 2013Q3

REPORT INFORMATION
  Report Type: Spontaneous
  Country: US (occurrence: US)
  Receive Date: 20130925
  Receipt Date: 20130925
  Transmission Date: 20140515
  Serious: No
  Sender: FDA-Public Use
  Company Number: US-B.I. PHARMACEUTICALS,INC./RIDGEFIELD-2013-BI-29256BP

PATIENT
  Age: 57 Year
  Sex: Male
  Weight: 113 kg

DRUGS (1)
  1. COMBIVENT [Suspect]
     Indication: ASTHMA
     Dosage: STRENGTH: 18 MCG / 103 MCG; DAILY DOSE: 72 MCG/412 MCG
     Route: 055
     Dates: start: 20130601, end: 20130630

REACTIONS (1)
  - Off label use [Recovered/Resolved]
